FAERS Safety Report 6014700-3 (Version None)
Quarter: 2008Q4

REPORT INFORMATION
  Report Type: 
  Country: None (occurrence: None)
  Receive Date: 20081219
  Receipt Date: 20081217
  Transmission Date: 20090506
  Serious: Yes (Hospitalization, Other)
  Sender: FDA-Public Use
  Company Number: US-ASTRAZENECA-2008UW18896

PATIENT
  Age: 47 Year
  Sex: Female
  Weight: 89.8 kg

DRUGS (4)
  1. SEROQUEL [Suspect]
     Indication: BIPOLAR DISORDER
     Dosage: 25 TO 200 MG
     Route: 048
     Dates: start: 20021107
  2. PROZAC [Concomitant]
     Dates: start: 19890101
  3. LITHIUM [Concomitant]
     Dates: start: 19790101
  4. METHADONE HCL [Concomitant]
     Dates: start: 20010101

REACTIONS (3)
  - ANIMAL BITE [None]
  - ARTHROPATHY [None]
  - DIABETES MELLITUS [None]
